FAERS Safety Report 17316766 (Version 1)
Quarter: 2020Q1

REPORT INFORMATION
  Report Type: Spontaneous
  Country: US (occurrence: US)
  Receive Date: 20200124
  Receipt Date: 20200124
  Transmission Date: 20200409
  Serious: No
  Sender: FDA-Public Use
  Company Number: US-PERRIGO-19US003060

PATIENT
  Age: 2 Year
  Sex: Male
  Weight: 14.97 kg

DRUGS (4)
  1. AMOXICILLIN. [Concomitant]
     Active Substance: AMOXICILLIN
     Indication: EAR INFECTION
     Dosage: UNK
     Route: 065
     Dates: start: 20190304
  2. IBUPROFEN. [Suspect]
     Active Substance: IBUPROFEN
     Indication: EAR PAIN
     Dosage: UNKNOWN, PRN
     Route: 048
     Dates: start: 2017
  3. TYLENOL [Concomitant]
     Active Substance: ACETAMINOPHEN
     Indication: EAR PAIN
     Dosage: UNK
     Route: 065
     Dates: start: 20190304
  4. IBUPROFEN. [Suspect]
     Active Substance: IBUPROFEN
     Dosage: APPROXIMATELY 100 MG, TWICE
     Route: 048
     Dates: start: 20190304, end: 20190304

REACTIONS (2)
  - Product administered to patient of inappropriate age [Recovered/Resolved]
  - Accidental exposure to product [Recovered/Resolved]

NARRATIVE: CASE EVENT DATE: 2017
